FAERS Safety Report 18718748 (Version 2)
Quarter: 2021Q1

REPORT INFORMATION
  Report Type: Report from Study
  Country: CA (occurrence: CA)
  Receive Date: 20210108
  Receipt Date: 20210111
  Transmission Date: 20210419
  Serious: Yes (Death)
  Sender: FDA-Public Use
  Company Number: CA-ASTRAZENECA-2021A002410

PATIENT
  Sex: Female

DRUGS (2)
  1. LYNPARZA [Suspect]
     Active Substance: OLAPARIB
     Indication: BREAST CANCER FEMALE
     Route: 048
     Dates: start: 20200723
  2. LYNPARZA [Suspect]
     Active Substance: OLAPARIB
     Indication: GENE MUTATION
     Route: 048
     Dates: start: 20200723

REACTIONS (1)
  - Death [Fatal]
